FAERS Safety Report 10770021 (Version 2)
Quarter: 2015Q1

REPORT INFORMATION
  Report Type: Report from Study
  Country: US (occurrence: US)
  Receive Date: 20150206
  Receipt Date: 20150220
  Transmission Date: 20150721
  Serious: Yes (Death, Hospitalization)
  Sender: FDA-Public Use
  Company Number: US-JNJFOC-20150119202

PATIENT
  Age: 89 Year
  Sex: Female
  Weight: 44.45 kg

DRUGS (9)
  1. LISINOPRIL. [Concomitant]
     Active Substance: LISINOPRIL
     Route: 048
  2. CLONAZEPAM. [Concomitant]
     Active Substance: CLONAZEPAM
     Route: 048
  3. CYMBALTA [Concomitant]
     Active Substance: DULOXETINE HYDROCHLORIDE
     Route: 048
  4. CRESTOR [Concomitant]
     Active Substance: ROSUVASTATIN CALCIUM
     Route: 048
  5. LAMICTAL [Concomitant]
     Active Substance: LAMOTRIGINE
     Route: 048
  6. ATENOLOL. [Concomitant]
     Active Substance: ATENOLOL
     Route: 048
  7. XARELTO [Suspect]
     Active Substance: RIVAROXABAN
     Indication: CEREBROVASCULAR ACCIDENT PROPHYLAXIS
     Route: 048
     Dates: start: 201407, end: 201411
  8. XARELTO [Suspect]
     Active Substance: RIVAROXABAN
     Indication: ATRIAL FIBRILLATION
     Route: 048
     Dates: start: 201407, end: 201411
  9. DIGOXIN. [Concomitant]
     Active Substance: DIGOXIN
     Dosage: DOSE: 0.125 UNITS UNSPECIFIED, ONCE
     Route: 048

REACTIONS (11)
  - Gait disturbance [Unknown]
  - Speech disorder [Unknown]
  - Pain [Unknown]
  - Death [Fatal]
  - Haemoglobin decreased [Recovered/Resolved]
  - Incorrect product storage [Unknown]
  - Rectal haemorrhage [Unknown]
  - Pain [Unknown]
  - Cyanosis [Unknown]
  - Asthenia [Unknown]
  - Skin discolouration [Unknown]

NARRATIVE: CASE EVENT DATE: 201411
